FAERS Safety Report 7845907-8 (Version None)
Quarter: 2011Q4

REPORT INFORMATION
  Report Type: 
  Country: None (occurrence: None)
  Receive Date: 20111025
  Receipt Date: 20111014
  Transmission Date: 20120403
  Serious: Yes (Other)
  Sender: FDA-Public Use
  Company Number: JP-AMGEN-JPNCT2011005312

PATIENT
  Age: 56 Year
  Sex: Male
  Weight: 58 kg

DRUGS (19)
  1. PANITUMUMAB [Suspect]
     Dosage: 4.8 MG/KG, Q2WK
     Route: 041
     Dates: start: 20110511, end: 20110511
  2. FLUOROURACIL [Suspect]
     Indication: COLORECTAL CANCER
     Route: 040
     Dates: start: 20101110, end: 20101208
  3. PANITUMUMAB [Suspect]
     Indication: COLORECTAL CANCER
     Dosage: 6 MG/KG, Q2WK
     Route: 041
     Dates: start: 20101110, end: 20101208
  4. ANTIHISTAMINES [Concomitant]
     Indication: PROPHYLAXIS
     Dosage: UNK
     Route: 065
  5. OXALIPLATIN [Suspect]
     Route: 041
     Dates: start: 20101110, end: 20101208
  6. LANSOPRAZOLE [Concomitant]
     Route: 048
  7. FERROUS CITRATE [Concomitant]
     Route: 048
  8. PANITUMUMAB [Suspect]
     Dosage: 4.8 MG/KG, Q2WK
     Route: 041
     Dates: start: 20110608
  9. OXALIPLATIN [Suspect]
     Indication: COLORECTAL CANCER
     Route: 041
     Dates: start: 20110608
  10. GOSHAJINKIGAN [Concomitant]
     Route: 048
  11. PANITUMUMAB [Suspect]
     Dosage: 4.8 MG/KG, Q2WK
     Route: 041
     Dates: start: 20101229, end: 20110413
  12. FLUOROURACIL [Suspect]
     Route: 041
     Dates: start: 20101110, end: 20101208
  13. HICEE [Concomitant]
     Route: 048
  14. XELODA [Concomitant]
     Indication: COLORECTAL CANCER
     Route: 048
     Dates: start: 20110608
  15. CORTICOSTEROIDS [Concomitant]
     Indication: PROPHYLAXIS
     Dosage: UNK
     Route: 065
  16. NIVADIL [Concomitant]
     Indication: HYPERTENSION
     Route: 048
  17. ROHYPNOL [Concomitant]
     Route: 048
  18. LEVOLEUCOVORIN CALCIUM [Concomitant]
     Indication: COLORECTAL CANCER
     Route: 041
     Dates: start: 20101110, end: 20101208
  19. MAGNESIUM OXIDE [Concomitant]
     Route: 048

REACTIONS (4)
  - NEUTROPHIL COUNT DECREASED [None]
  - DERMATITIS ACNEIFORM [None]
  - BRONCHITIS [None]
  - DEVICE OCCLUSION [None]
